FAERS Safety Report 9562608 (Version 1)
Quarter: 2013Q3

REPORT INFORMATION
  Report Type: Spontaneous
  Country: US (occurrence: None)
  Receive Date: 20130926
  Receipt Date: 20130926
  Transmission Date: 20140515
  Serious: Yes (Hospitalization)
  Sender: FDA-Public Use
  Company Number: None

PATIENT
  Age: 54 Year
  Sex: Female

DRUGS (1)
  1. COPAXONE, 20 MG, TEVA [Suspect]
     Indication: MULTIPLE SCLEROSIS
     Route: 058
     Dates: start: 20130322, end: 20130912

REACTIONS (6)
  - Chest pain [None]
  - Flushing [None]
  - Thrombosis [None]
  - Erythema [None]
  - Contusion [None]
  - Vein disorder [None]
